FAERS Safety Report 5052670-5 (Version None)
Quarter: 2006Q3

REPORT INFORMATION
  Report Type: 
  Country: None (occurrence: None)
  Receive Date: 20060714
  Receipt Date: 20060714
  Transmission Date: 20061208
  Serious: Yes (Hospitalization)
  Sender: FDA-Public Use
  Company Number: None

PATIENT
  Age: 61 Year
  Sex: Female
  Weight: 48 kg

DRUGS (13)
  1. OXALIPLATIN [Suspect]
     Indication: SALIVARY GLAND CANCER
     Dosage: 192 MG QD IV
     Route: 042
     Dates: start: 20060712
  2. CAPECITABINE [Suspect]
     Indication: SALIVARY GLAND CANCER
     Dosage: 1300 MG PO BID
     Route: 048
     Dates: start: 20060713, end: 20060726
  3. ZOFRAN [Concomitant]
  4. SYNTHROID [Concomitant]
  5. ZYPREXA [Concomitant]
  6. NEURONTIN [Concomitant]
  7. METHADONE HCL [Concomitant]
  8. DILAUDID [Concomitant]
  9. CALTRATE [Concomitant]
  10. ATIVAN [Concomitant]
  11. COLACE [Concomitant]
  12. ACETAMINOPHEN [Concomitant]
  13. ENOXAPARIN SODIUM [Concomitant]

REACTIONS (7)
  - BACK PAIN [None]
  - BLOOD PRESSURE DIASTOLIC INCREASED [None]
  - DRUG HYPERSENSITIVITY [None]
  - DYSPNOEA [None]
  - HYPOAESTHESIA [None]
  - PARAESTHESIA [None]
  - VOMITING [None]
